FAERS Safety Report 5925555-7 (Version None)
Quarter: 2008Q4

REPORT INFORMATION
  Report Type: 
  Country: None (occurrence: None)
  Receive Date: 20081021
  Receipt Date: 20081016
  Transmission Date: 20090506
  Serious: Yes (Death, Other)
  Sender: FDA-Public Use
  Company Number: PHHY2008US08753

PATIENT
  Age: 29 Year
  Sex: Male

DRUGS (3)
  1. CLOZARIL [Suspect]
     Indication: SCHIZOPHRENIA
     Dosage: 500 MG/DAY
  2. CLOZARIL [Suspect]
     Dosage: 500 MG, QD
  3. CLOZARIL [Suspect]
     Dosage: 250 MG

REACTIONS (8)
  - APATHY [None]
  - CARDIAC DISORDER [None]
  - DYSPNOEA [None]
  - FATIGUE [None]
  - INFLUENZA LIKE ILLNESS [None]
  - OEDEMA PERIPHERAL [None]
  - SOMNOLENCE [None]
  - TREATMENT NONCOMPLIANCE [None]
